FAERS Safety Report 15304779 (Version 1)
Quarter: 2018Q3

REPORT INFORMATION
  Report Type: Report from Study
  Country: CN (occurrence: CN)
  Receive Date: 20180821
  Receipt Date: 20180821
  Transmission Date: 20181010
  Serious: Yes (Hospitalization)
  Sender: FDA-Public Use
  Company Number: CN-AMGEN-CHNCT2018114545

PATIENT
  Age: 31 Year
  Sex: Female

DRUGS (15)
  1. RACEANISODAMINE HYDROCHLORIDE [Concomitant]
     Dosage: 100 MG, UNK
     Dates: start: 20180805
  2. REDUCED GLUTATHIONE SODIUM [Concomitant]
     Active Substance: GLUTATHIONE
     Dosage: 2.4 G, QD
     Dates: start: 20180806
  3. NIFEDIPINE. [Concomitant]
     Active Substance: NIFEDIPINE
     Indication: HYPERTENSION
     Dosage: 10 MG, QD
     Route: 048
     Dates: start: 20180807, end: 20180808
  4. OXIRACETAM [Concomitant]
     Active Substance: OXIRACETAM
     Dosage: 2.4 G, QD
     Dates: start: 20180803
  5. UROKINASE [Concomitant]
     Active Substance: UROKINASE
     Dosage: 300 KU, UNK
     Dates: start: 20180806
  6. SODIUM NITROPRUSSIDE. [Concomitant]
     Active Substance: SODIUM NITROPRUSSIDE
     Indication: HYPERTENSION
     Dosage: 50 MG, UNK
     Dates: start: 20180806
  7. ALPROSTADIL. [Concomitant]
     Active Substance: ALPROSTADIL
     Dosage: 2 ML, QD
     Dates: start: 20180803
  8. ORAL GLUCOSE [Concomitant]
     Indication: HYPOGLYCAEMIA
     Dosage: 40 ML, UNK
     Dates: start: 20180807
  9. RIBOFLAVIN [Concomitant]
     Active Substance: RIBOFLAVIN
     Dosage: 10 ML, QD
     Dates: start: 20180805
  10. ANTITHROMBIN ALFA [Concomitant]
     Active Substance: ANTITHROMBIN ALFA
     Indication: THROMBOLYSIS
  11. ACETYLCYSTEINE. [Concomitant]
     Active Substance: ACETYLCYSTEINE
     Dosage: 20 ML, QD
     Dates: start: 20180803
  12. CINACALCET HCL [Suspect]
     Active Substance: CINACALCET HYDROCHLORIDE
     Indication: HYPERPARATHYROIDISM SECONDARY
     Dosage: 25 MG, QD
     Route: 048
     Dates: start: 20171030
  13. ANTITHROMBIN ALFA [Concomitant]
     Active Substance: ANTITHROMBIN ALFA
     Indication: THROMBOSIS
     Dosage: UNK
  14. NICARDIPINE HYDROCHLORIDE. [Concomitant]
     Active Substance: NICARDIPINE HYDROCHLORIDE
     Indication: HYPERTENSION
     Dosage: 40 MG, BID
     Route: 048
     Dates: start: 20180806
  15. PRAZOSIN. [Concomitant]
     Active Substance: PRAZOSIN
     Indication: HYPERTENSION
     Dosage: 0.5 MG, TID
     Route: 048
     Dates: start: 20180803

REACTIONS (1)
  - Tremor [Unknown]

NARRATIVE: CASE EVENT DATE: 20180803
